FAERS Safety Report 6753810-X (Version None)
Quarter: 2010Q2

REPORT INFORMATION
  Report Type: 
  Country: None (occurrence: None)
  Receive Date: 20100603
  Receipt Date: 20100511
  Transmission Date: 20101027
  Serious: Yes (Death, Hospitalization, Other)
  Sender: FDA-Public Use
  Company Number: US-BAYER-200930726NA

PATIENT
  Age: 79 Year
  Sex: Female
  Weight: 68 kg

DRUGS (31)
  1. MAGNEVIST [Suspect]
     Indication: NUCLEAR MAGNETIC RESONANCE IMAGING ABDOMINAL
     Route: 042
     Dates: start: 20060112, end: 20060112
  2. MAGNEVIST [Suspect]
     Route: 042
     Dates: start: 20060117, end: 20060117
  3. MAGNEVIST [Suspect]
     Route: 042
     Dates: start: 20060330, end: 20060330
  4. OMNISCAN [Suspect]
     Indication: NUCLEAR MAGNETIC RESONANCE IMAGING ABDOMINAL
     Dosage: AS USED: 20 ML
     Route: 042
     Dates: start: 20060802, end: 20060802
  5. OMNISCAN [Suspect]
     Route: 042
     Dates: start: 20060201, end: 20060201
  6. COUMADIN [Concomitant]
  7. SENSIPAR [Concomitant]
     Indication: RENAL FAILURE
  8. FOSRENOL [Concomitant]
     Dosage: TOTAL DAILY DOSE: 3 DF
  9. PROTONIX [Concomitant]
  10. DIGOXIN [Concomitant]
     Dosage: 0.125 MG M, W, F
  11. CALCITRIOL [Concomitant]
  12. EPOGEN [Concomitant]
     Indication: ANAEMIA
     Dosage: 20,000 UNITS WEEKLY (NOTED IN 23-JAN-2006 NOTES)
  13. METOPROLOL TARTRATE [Concomitant]
  14. PREDNISONE TAB [Concomitant]
  15. LASIX [Concomitant]
     Dates: start: 20010401
  16. CARDIZEM [Concomitant]
     Dates: start: 20010401
  17. CARDURA [Concomitant]
     Dosage: TOTAL DAILY DOSE: 1 MG
     Dates: start: 20020701
  18. SYNTHROID [Concomitant]
  19. IRON [Concomitant]
  20. IRON SUCROSE [Concomitant]
     Dosage: DURING DIALYSIS
  21. PULMICORT [Concomitant]
     Dosage: ^1 BID^
  22. CELLCEPT [Concomitant]
     Dosage: TOTAL DAILY DOSE: 2000 MG
  23. BELATOCEPT [Concomitant]
     Dates: start: 20060101
  24. ZEMPLAR [Concomitant]
  25. VALCYTE [Concomitant]
  26. ACYCLOVIR [Concomitant]
  27. DOXERCALCIFEROL (HECTOROL) [Concomitant]
  28. COMBIVENT [Concomitant]
     Dosage: TOTAL DAILY DOSE: 4 PUFF
  29. RITUXIMAB [Concomitant]
     Dosage: 6 CYCLES
     Dates: start: 20060101, end: 20060201
  30. COZAAR [Concomitant]
     Dates: start: 20040406, end: 20050826
  31. LEVAQUIN [Concomitant]
     Dosage: 06-JAN-2006; 25-MAR-2006; 05-OCT-2007

REACTIONS (17)
  - DEFORMITY [None]
  - GENERAL PHYSICAL HEALTH DETERIORATION [None]
  - JOINT STIFFNESS [None]
  - JOINT SWELLING [None]
  - MOBILITY DECREASED [None]
  - NEPHROGENIC SYSTEMIC FIBROSIS [None]
  - OEDEMA [None]
  - OEDEMA PERIPHERAL [None]
  - PAIN [None]
  - PAIN OF SKIN [None]
  - PULMONARY FIBROSIS [None]
  - RESPIRATORY DISORDER [None]
  - SCAR [None]
  - SKIN DISCOLOURATION [None]
  - SKIN FIBROSIS [None]
  - SKIN HYPERTROPHY [None]
  - SKIN INDURATION [None]
